FAERS Safety Report 13938575 (Version 1)
Quarter: 2017Q3

REPORT INFORMATION
  Report Type: Spontaneous
  Country: US (occurrence: US)
  Receive Date: 20170905
  Receipt Date: 20170905
  Transmission Date: 20171127
  Serious: Yes (Other)
  Sender: FDA-Public Use
  Company Number: US-ELI_LILLY_AND_COMPANY-US201708012198

PATIENT
  Sex: Female

DRUGS (4)
  1. LEVEMIR [Concomitant]
     Active Substance: INSULIN DETEMIR
     Dosage: UNK, UNKNOWN
     Route: 065
  2. HUMALOG [Suspect]
     Active Substance: INSULIN LISPRO
     Indication: TYPE 2 DIABETES MELLITUS
     Dosage: UNK, UNKNOWN
     Route: 058
  3. SIMVASTATIN. [Concomitant]
     Active Substance: SIMVASTATIN
     Dosage: UNK, UNKNOWN
     Route: 065
  4. HUMULIN R [Suspect]
     Active Substance: INSULIN HUMAN
     Indication: TYPE 2 DIABETES MELLITUS
     Dosage: UNK, TID
     Route: 058

REACTIONS (6)
  - Dizziness [Not Recovered/Not Resolved]
  - Asthma [Not Recovered/Not Resolved]
  - Hypersensitivity [Not Recovered/Not Resolved]
  - Somnolence [Unknown]
  - Macular degeneration [Not Recovered/Not Resolved]
  - Upper respiratory tract infection [Recovered/Resolved]
